FAERS Safety Report 8250004-6 (Version None)
Quarter: 2012Q2

REPORT INFORMATION
  Report Type: 
  Country: None (occurrence: None)
  Receive Date: 20120402
  Receipt Date: 20120326
  Transmission Date: 20120825
  Serious: Yes (Death)
  Sender: FDA-Public Use
  Company Number: US-NOVOPROD-348094

PATIENT
  Age: 5 Month
  Sex: Male

DRUGS (1)
  1. NOVOSEVEN RT [Suspect]
     Indication: HAEMOPHILIA
     Route: 042

REACTIONS (1)
  - DEATH [None]
